FAERS Safety Report 23365961 (Version 2)
Quarter: 2025Q1

REPORT INFORMATION
  Report Type: Spontaneous
  Country: KR (occurrence: KR)
  Receive Date: 20240104
  Receipt Date: 20250321
  Transmission Date: 20250409
  Serious: Yes (Other)
  Sender: TEVA
  Company Number: KR-TEVA-VS-3140043

PATIENT
  Age: 10 Year
  Sex: Male

DRUGS (2)
  1. LETROZOLE [Suspect]
     Active Substance: LETROZOLE
     Indication: Short stature
     Route: 065
  2. rhGH [Concomitant]
     Indication: Precocious puberty
     Route: 065

REACTIONS (3)
  - Psychomotor hyperactivity [Unknown]
  - Aggression [Unknown]
  - Off label use [Unknown]
